FAERS Safety Report 9333991 (Version 1)
Quarter: 2013Q2

REPORT INFORMATION
  Report Type: Spontaneous
  Country: US (occurrence: US)
  Receive Date: 20130606
  Receipt Date: 20130606
  Transmission Date: 20140414
  Serious: No
  Sender: FDA-Public Use
  Company Number: US-AMGEN-USASP2013011041

PATIENT
  Age: 63 Year
  Sex: Female

DRUGS (1)
  1. PROLIA [Suspect]
     Indication: OSTEOPOROSIS POSTMENOPAUSAL

REACTIONS (7)
  - Feeling jittery [Recovered/Resolved]
  - Restless legs syndrome [Recovered/Resolved]
  - Burning sensation [Recovered/Resolved]
  - Neurological symptom [Recovered/Resolved]
  - Back pain [Recovered/Resolved]
  - Pruritus [Recovered/Resolved]
  - Sciatica [Recovered/Resolved]
